FAERS Safety Report 7288785-0 (Version None)
Quarter: 2011Q1

REPORT INFORMATION
  Report Type: 
  Country: None (occurrence: None)
  Receive Date: 20110211
  Receipt Date: 20110204
  Transmission Date: 20110831
  Serious: Yes (Hospitalization, Other)
  Sender: FDA-Public Use
  Company Number: FR-PFIZER INC-2011025663

PATIENT
  Age: 74 Year
  Sex: Female

DRUGS (7)
  1. TAHOR [Suspect]
     Dosage: UNK
     Route: 048
     Dates: end: 20101210
  2. ASPEGIC 325 [Suspect]
     Dosage: 250 MG, UNK
     Route: 048
     Dates: end: 20101210
  3. COVERSYL [Suspect]
     Dosage: 2.5 MG, UNK
     Route: 048
     Dates: end: 20101210
  4. TAMOXIFEN BASE [Suspect]
     Indication: BREAST CANCER
     Dosage: UNK
     Route: 048
     Dates: start: 20070101, end: 20101210
  5. FUROSEMIDE [Suspect]
     Dosage: UNK
     Route: 048
     Dates: start: 20101108, end: 20101208
  6. KALEORID [Concomitant]
     Dosage: UNK
     Dates: start: 20101108, end: 20101208
  7. PYOSTACINE [Suspect]
     Indication: ERYSIPELAS
     Dosage: SINGLE DOSE
     Route: 048
     Dates: start: 20101209, end: 20101209

REACTIONS (6)
  - PYREXIA [None]
  - CYTOLYTIC HEPATITIS [None]
  - URINARY TRACT INFECTION [None]
  - AGRANULOCYTOSIS [None]
  - LIPASE INCREASED [None]
  - TOXIC SKIN ERUPTION [None]
